FAERS Safety Report 6065780-0 (Version None)
Quarter: 2009Q1

REPORT INFORMATION
  Report Type: 
  Country: None (occurrence: None)
  Receive Date: 20090205
  Receipt Date: 20090128
  Transmission Date: 20090719
  Serious: Yes (Hospitalization)
  Sender: FDA-Public Use
  Company Number: GB-RANBAXY-2009RR-21495

PATIENT
  Age: 81 Year
  Sex: Male

DRUGS (9)
  1. AMOXICILLIN + CLAVULANATE POTASSIUM [Suspect]
     Indication: EYE INFECTION
     Dosage: UNK
     Route: 048
     Dates: start: 20081007, end: 20081014
  2. CHLORAMPHENICOL [Concomitant]
     Indication: EYE INFECTION
     Dosage: 1 DF, QID
     Route: 047
     Dates: start: 20080926, end: 20081003
  3. FINASTERIDE [Concomitant]
     Dosage: 5 MG, QD
     Route: 048
     Dates: start: 20041019
  4. FLUCLOXACILLIN [Concomitant]
     Indication: EYE INFECTION
     Dosage: 250 MG, QID
     Route: 048
     Dates: start: 20080926, end: 20081003
  5. FUSIDIC ACID [Concomitant]
     Indication: EYE INFECTION
     Dosage: 1 DF, BID
     Route: 047
     Dates: start: 20081007, end: 20081014
  6. LISINOPRIL [Concomitant]
     Indication: HYPERTENSION
     Dosage: 10 MG, QD
     Route: 048
     Dates: start: 20080919
  7. PREDNISOLONE [Concomitant]
     Indication: MYALGIA
     Dosage: 5 MG, QD
     Route: 048
     Dates: start: 20070619
  8. SALBUTAMOL [Concomitant]
     Indication: CHRONIC OBSTRUCTIVE PULMONARY DISEASE
     Dosage: 100 UG, PRN
     Route: 055
     Dates: start: 20070627
  9. SERETIDE [Concomitant]
     Indication: CHRONIC OBSTRUCTIVE PULMONARY DISEASE
     Dosage: UNK
     Route: 055
     Dates: start: 20061012

REACTIONS (2)
  - CHOLELITHIASIS [None]
  - JAUNDICE [None]
